FAERS Safety Report 8444819-9 (Version None)
Quarter: 2012Q2

REPORT INFORMATION
  Report Type: 
  Country: None (occurrence: None)
  Receive Date: 20120618
  Receipt Date: 20120612
  Transmission Date: 20120825
  Serious: Yes (Death, Hospitalization, Other)
  Sender: FDA-Public Use
  Company Number: PHEH2012US011426

PATIENT
  Sex: Male

DRUGS (1)
  1. GILENYA [Suspect]
     Indication: MULTIPLE SCLEROSIS
     Dosage: 0.5 MG, QD
     Route: 048
     Dates: start: 20111129

REACTIONS (6)
  - RENAL FAILURE [None]
  - HEAD INJURY [None]
  - FALL [None]
  - SEPSIS [None]
  - KIDNEY INFECTION [None]
  - CONVULSION [None]
